FAERS Safety Report 6991432-6 (Version None)
Quarter: 2010Q3

REPORT INFORMATION
  Report Type: 
  Country: None (occurrence: None)
  Receive Date: 20100916
  Receipt Date: 20090818
  Transmission Date: 20110219
  Serious: No
  Sender: FDA-Public Use
  Company Number: US-WYE-H10787409

PATIENT
  Sex: Female

DRUGS (2)
  1. PRISTIQ [Suspect]
     Indication: ANXIETY
     Route: 048
     Dates: start: 20090720
  2. PRISTIQ [Suspect]
     Indication: DEPRESSION

REACTIONS (2)
  - HEADACHE [None]
  - SOMNOLENCE [None]
